FAERS Safety Report 11127544 (Version 2)
Quarter: 2019Q3

REPORT INFORMATION
  Report Type: Report from Study
  Country: US (occurrence: US)
  Receive Date: 20150521
  Receipt Date: 20190808
  Transmission Date: 20191004
  Serious: Yes (Hospitalization, Other)
  Sender: FDA-Public Use
  Company Number: US-AMGEN-USASP2015048950

PATIENT
  Age: 76 Year
  Sex: Female

DRUGS (4)
  1. METHOTREXATE. [Concomitant]
     Active Substance: METHOTREXATE
     Dosage: UNK
  2. ENBREL [Suspect]
     Active Substance: ETANERCEPT
     Dosage: 50 MILLIGRAM, QWK
     Route: 065
     Dates: start: 2013, end: 2013
  3. ENBREL [Suspect]
     Active Substance: ETANERCEPT
     Indication: RHEUMATOID ARTHRITIS
     Dosage: 50 MILLIGRAM, QWK
     Route: 065
     Dates: start: 20110618, end: 2013
  4. ENBREL [Suspect]
     Active Substance: ETANERCEPT
     Dosage: 50 MILLIGRAM, QWK
     Route: 065
     Dates: start: 2013

REACTIONS (16)
  - Finger deformity [Not Recovered/Not Resolved]
  - Muscle tightness [Not Recovered/Not Resolved]
  - Nerve injury [Unknown]
  - Bursitis [Unknown]
  - Fall [Recovered/Resolved]
  - Peripheral swelling [Not Recovered/Not Resolved]
  - Injection site discolouration [Not Recovered/Not Resolved]
  - Peroneal nerve palsy [Unknown]
  - Paraesthesia [Unknown]
  - Hip fracture [Not Recovered/Not Resolved]
  - Injection site pain [Unknown]
  - Vertigo [Recovered/Resolved]
  - Sciatic nerve neuropathy [Unknown]
  - Balance disorder [Unknown]
  - Postoperative wound infection [Unknown]
  - Hernia [Unknown]

NARRATIVE: CASE EVENT DATE: 2013
